FAERS Safety Report 24665500 (Version 3)
Quarter: 2024Q4

REPORT INFORMATION
  Report Type: Spontaneous
  Country: US (occurrence: US)
  Receive Date: 20241126
  Receipt Date: 20241217
  Transmission Date: 20250114
  Serious: Yes (Hospitalization)
  Sender: SANOFI AVENTIS
  Company Number: US-SA-2024SA338566

PATIENT
  Age: 67 Year
  Sex: Female

DRUGS (11)
  1. DUPIXENT [Suspect]
     Active Substance: DUPILUMAB
     Indication: Asthma
     Dosage: 300 MG, QOW
     Route: 058
  2. CYCLOBENZAPRINE [Concomitant]
     Active Substance: CYCLOBENZAPRINE
  3. FUROSEMIDE [Concomitant]
     Active Substance: FUROSEMIDE
  4. JANUVIA [Concomitant]
     Active Substance: SITAGLIPTIN PHOSPHATE
  5. LATANOPROST [Concomitant]
     Active Substance: LATANOPROST
  6. NORVASC [Concomitant]
     Active Substance: AMLODIPINE BESYLATE
  7. PRASUGREL HYDROCHLORIDE [Concomitant]
     Active Substance: PRASUGREL HYDROCHLORIDE
  8. SPIRONOLACTONE [Concomitant]
     Active Substance: SPIRONOLACTONE
  9. TRELEGY ELLIPTA [Concomitant]
     Active Substance: FLUTICASONE FUROATE\UMECLIDINIUM BROMIDE\VILANTEROL TRIFENATATE
  10. LYRICA [Concomitant]
     Active Substance: PREGABALIN
  11. ALBUTEROL SULFATE [Concomitant]
     Active Substance: ALBUTEROL SULFATE

REACTIONS (18)
  - Ear disorder [Unknown]
  - Vertigo [Unknown]
  - Dizziness [Unknown]
  - Eczema [Unknown]
  - Ear discomfort [Unknown]
  - Hypoacusis [Unknown]
  - Fall [Unknown]
  - Limb injury [Unknown]
  - Arthritis [Unknown]
  - Grip strength decreased [Unknown]
  - Back injury [Unknown]
  - Pruritus [Unknown]
  - Insomnia [Unknown]
  - Asthma [Unknown]
  - Wheezing [Unknown]
  - Oropharyngeal pain [Unknown]
  - Cough [Unknown]
  - Physiotherapy [Unknown]

NARRATIVE: CASE EVENT DATE: 20240101
